FAERS Safety Report 19056939 (Version 1)
Quarter: 2021Q1

REPORT INFORMATION
  Report Type: Spontaneous
  Country: HU (occurrence: HU)
  Receive Date: 20210325
  Receipt Date: 20210325
  Transmission Date: 20210420
  Serious: Yes (Hospitalization, Other)
  Sender: FDA-Public Use
  Company Number: NVSC2021HU054133

PATIENT
  Age: 34 Year
  Sex: Female

DRUGS (5)
  1. INTERFERON [Concomitant]
     Active Substance: INTERFERON
     Indication: PRODUCT USED FOR UNKNOWN INDICATION
     Dosage: 3 MILLION INTERNATIONAL UNIT (3X)
     Route: 065
     Dates: start: 2015
  2. NILOTINIB [Suspect]
     Active Substance: NILOTINIB
     Indication: CHRONIC MYELOID LEUKAEMIA
     Dosage: 300 MG (2X)
     Route: 065
     Dates: start: 201407, end: 201505
  3. NILOTINIB [Suspect]
     Active Substance: NILOTINIB
     Dosage: 300 MG (2X)
     Route: 065
     Dates: start: 201508
  4. INTERFERON [Concomitant]
     Active Substance: INTERFERON
     Dosage: UNK (3X6 MILLION IU, WEEKLY)
     Route: 065
     Dates: end: 201507
  5. INTERFERON [Concomitant]
     Active Substance: INTERFERON
     Dosage: UNK
     Route: 065
     Dates: start: 201507, end: 201508

REACTIONS (7)
  - Palpitations [Unknown]
  - Proctalgia [Unknown]
  - Philadelphia chromosome positive [Recovered/Resolved]
  - Faeces hard [Unknown]
  - Haematochezia [Unknown]
  - Fatigue [Unknown]
  - Anal fissure [Unknown]

NARRATIVE: CASE EVENT DATE: 2014
